FAERS Safety Report 6243563-6 (Version None)
Quarter: 2009Q2

REPORT INFORMATION
  Report Type: 
  Country: None (occurrence: None)
  Receive Date: 20090624
  Receipt Date: 20090622
  Transmission Date: 20091009
  Serious: Yes (Hospitalization, Congenital Anomaly)
  Sender: FDA-Public Use
  Company Number: FR-JNJFOC-20081205432

PATIENT
  Sex: Female

DRUGS (19)
  1. IMODIUM [Suspect]
     Indication: DRUG EXPOSURE DURING PREGNANCY
  2. CONTRAMAL [Suspect]
     Indication: DRUG EXPOSURE DURING PREGNANCY
  3. TAVANIC [Suspect]
     Indication: DRUG EXPOSURE DURING PREGNANCY
  4. ARACYTINE [Suspect]
  5. ARACYTINE [Suspect]
     Indication: DRUG EXPOSURE DURING PREGNANCY
  6. CERUBIDINE [Suspect]
     Indication: DRUG EXPOSURE DURING PREGNANCY
  7. TAZOCILLINE [Suspect]
     Indication: DRUG EXPOSURE DURING PREGNANCY
  8. VANCOMYCINE [Suspect]
     Indication: DRUG EXPOSURE DURING PREGNANCY
  9. PLITICAN [Suspect]
     Indication: DRUG EXPOSURE DURING PREGNANCY
  10. SPASFON [Suspect]
     Indication: DRUG EXPOSURE DURING PREGNANCY
  11. DEBRIDAT [Suspect]
     Indication: DRUG EXPOSURE DURING PREGNANCY
  12. PRIMPERAN [Suspect]
     Indication: DRUG EXPOSURE DURING PREGNANCY
  13. ACETAMINOPHEN [Suspect]
     Indication: DRUG EXPOSURE DURING PREGNANCY
  14. ECONAZOLE NITRATE [Suspect]
     Indication: DRUG EXPOSURE DURING PREGNANCY
  15. ACUPAN [Suspect]
     Indication: DRUG EXPOSURE DURING PREGNANCY
  16. ALUMINUM HYDROXIDE AND MAGNESIUM TRISILICATE [Suspect]
     Indication: DRUG EXPOSURE DURING PREGNANCY
  17. AMIKACIN [Suspect]
     Indication: DRUG EXPOSURE DURING PREGNANCY
  18. TARGOCID [Suspect]
     Indication: DRUG EXPOSURE DURING PREGNANCY
  19. ATARAX [Suspect]
     Indication: DRUG EXPOSURE DURING PREGNANCY

REACTIONS (8)
  - ANAEMIA [None]
  - FOETAL GROWTH RETARDATION [None]
  - FOETAL HEART RATE DISORDER [None]
  - JAUNDICE NEONATAL [None]
  - PERIVENTRICULAR LEUKOMALACIA [None]
  - PREMATURE BABY [None]
  - RESPIRATORY DISTRESS [None]
  - STAPHYLOCOCCAL INFECTION [None]
